FAERS Safety Report 5923629-8 (Version None)
Quarter: 2008Q4

REPORT INFORMATION
  Report Type: 
  Country: None (occurrence: None)
  Receive Date: 20081020
  Receipt Date: 20081008
  Transmission Date: 20090506
  Serious: Yes (Hospitalization)
  Sender: FDA-Public Use
  Company Number: US-WATSON-2008-06033

PATIENT
  Age: 73 Year
  Sex: Male

DRUGS (2)
  1. TRELSTAR LA MIXJECT (WATSON LABORATORIES) [Suspect]
     Indication: PROSTATE CANCER
     Dosage: 11.25 MG, Q 3 MONTHS
     Route: 030
     Dates: start: 20080701
  2. CASODEX [Concomitant]
     Indication: PROSTATE CANCER
     Dosage: 50 MG, DAILY
     Route: 048
     Dates: start: 20030101

REACTIONS (5)
  - MUSCULAR WEAKNESS [None]
  - NERVE ROOT COMPRESSION [None]
  - PAIN IN EXTREMITY [None]
  - PARALYSIS [None]
  - URINARY INCONTINENCE [None]
